FAERS Safety Report 5413119-3 (Version None)
Quarter: 2007Q3

REPORT INFORMATION
  Report Type: 
  Country: None (occurrence: None)
  Receive Date: 20070809
  Receipt Date: 20070731
  Transmission Date: 20080115
  Serious: Yes (Hospitalization)
  Sender: FDA-Public Use
  Company Number: 2007-03599

PATIENT
  Age: 68 Year
  Sex: Female

DRUGS (1)
  1. QUINIDINE SULFATE [Suspect]
     Indication: ARRHYTHMIA
     Dosage: X 18 YEARS, ORAL
     Route: 048

REACTIONS (4)
  - ANTI-PROTHROMBIN ANTIBODY POSITIVE [None]
  - ANTIPHOSPHOLIPID ANTIBODIES [None]
  - HYPOCOAGULABLE STATE [None]
  - HYPOPROTHROMBINAEMIA [None]
